FAERS Safety Report 22355209 (Version 1)
Quarter: 2023Q2

REPORT INFORMATION
  Report Type: Spontaneous
  Country: US (occurrence: US)
  Receive Date: 20230523
  Receipt Date: 20230523
  Transmission Date: 20230721
  Serious: No
  Sender: FDA-Public Use
  Company Number: US-GLENMARK PHARMACEUTICALS-2023GMK078352

PATIENT

DRUGS (1)
  1. CLOBETASOL PROPIONATE [Suspect]
     Active Substance: CLOBETASOL PROPIONATE
     Indication: Pruritus
     Dosage: UNK
     Route: 065

REACTIONS (5)
  - Chromaturia [Recovered/Resolved]
  - Urine odour abnormal [Recovered/Resolved]
  - Haemoglobin decreased [Unknown]
  - Product use issue [Unknown]
  - Skin hypopigmentation [Unknown]
